FAERS Safety Report 10273718 (Version 2)
Quarter: 2014Q4

REPORT INFORMATION
  Report Type: Spontaneous
  Country: JP (occurrence: None)
  Receive Date: 20140630
  Receipt Date: 20141106
  Transmission Date: 20150528
  Serious: Yes (Other)
  Sender: FDA-Public Use
  Company Number: JP-016135

PATIENT
  Age: 36 Year
  Sex: Female

DRUGS (3)
  1. HCG [Concomitant]
     Active Substance: GONADOTROPHIN, CHORIONIC
  2. HORMONE ANTAGONISTS AND RELATED AGENTS [Concomitant]
     Active Substance: UNSPECIFIED INGREDIENT
  3. HMG [Suspect]
     Active Substance: GONADOTROPHIN, CHORIONIC
     Indication: INFERTILITY
     Route: 030

REACTIONS (10)
  - Oliguria [None]
  - Pleural effusion [None]
  - Weight increased [None]
  - Back pain [None]
  - Ascites [None]
  - Foetal death [None]
  - Abdominal distension [None]
  - Abdominal pain [None]
  - Exposure during pregnancy [None]
  - Ovarian hyperstimulation syndrome [None]
